FAERS Safety Report 5896823-2 (Version None)
Quarter: 2008Q3

REPORT INFORMATION
  Report Type: 
  Country: None (occurrence: None)
  Receive Date: 20080924
  Receipt Date: 20071015
  Transmission Date: 20090109
  Serious: No
  Sender: FDA-Public Use
  Company Number: US-BAYER-200713955BWH

PATIENT
  Sex: Female

DRUGS (1)
  1. AVELOX [Suspect]
     Indication: RESPIRATORY TRACT INFECTION
     Route: 048

REACTIONS (4)
  - CHEST PAIN [None]
  - DIZZINESS [None]
  - ELECTROCARDIOGRAM ABNORMAL [None]
  - NAUSEA [None]
